FAERS Safety Report 11364842 (Version 1)
Quarter: 2015Q3

REPORT INFORMATION
  Report Type: Spontaneous
  Country: US (occurrence: US)
  Receive Date: 20150811
  Receipt Date: 20150811
  Transmission Date: 20151125
  Serious: Yes (Hospitalization)
  Sender: FDA-Public Use
  Company Number: US-GLAXOSMITHKLINE-US2015GSK110066

PATIENT
  Sex: Female

DRUGS (1)
  1. ADVAIR DISKUS [Suspect]
     Active Substance: FLUTICASONE PROPIONATE\SALMETEROL XINAFOATE
     Indication: BRONCHITIS
     Dosage: 100 UG, UNK

REACTIONS (6)
  - Bronchitis [Unknown]
  - Unevaluable event [Unknown]
  - Nasal septal operation [Unknown]
  - Wheezing [Unknown]
  - Breathing-related sleep disorder [Unknown]
  - Feeling abnormal [Unknown]
